FAERS Safety Report 26209660 (Version 1)
Quarter: 2025Q4

REPORT INFORMATION
  Report Type: Report from Study
  Country: US (occurrence: US)
  Receive Date: 20251229
  Receipt Date: 20251229
  Transmission Date: 20260118
  Serious: Yes (Other)
  Sender: ALEXION PHARMACEUTICALS
  Company Number: US-AstraZeneca-CH-01020156A

PATIENT
  Age: 86 Year
  Sex: Female
  Weight: 65.77 kg

DRUGS (11)
  1. CAPIVASERTIB [Suspect]
     Active Substance: CAPIVASERTIB
     Indication: Neoplasm malignant
     Dosage: 200 MILLIGRAM, BID
     Route: 061
     Dates: start: 20251110
  2. ADVAIR HFA [Concomitant]
     Active Substance: FLUTICASONE PROPIONATE\SALMETEROL XINAFOATE
     Dosage: 1 UNK, BID, MON-THURS
     Route: 061
  3. ALBUTEROL SULFATE [Concomitant]
     Active Substance: ALBUTEROL SULFATE
     Dosage: 1 UNK, BID, MON-THURS
     Route: 061
  4. FOLIC ACID [Concomitant]
     Active Substance: FOLIC ACID
     Dosage: 1 UNK, BID, MON-THURS
     Route: 061
  5. LOSARTAN [Concomitant]
     Active Substance: LOSARTAN
     Dosage: 1 UNK, BID, MON-THURS
     Route: 061
  6. MAGNESIUM [Concomitant]
     Active Substance: MAGNESIUM
     Dosage: 1 UNK, BID, MON-THURS
     Route: 061
  7. ASPIRIN [Concomitant]
     Active Substance: ASPIRIN
     Dosage: 1 UNK, BID, MON-THURS
     Route: 061
  8. DILTIAZEM [Concomitant]
     Active Substance: DILTIAZEM
     Dosage: 1 UNK, BID, MON-THURS
     Route: 061
  9. FASLODEX [Concomitant]
     Active Substance: FULVESTRANT
     Dosage: 1 UNK, BID
     Route: 061
  10. VITAMIN B1 [Concomitant]
     Active Substance: THIAMINE HYDROCHLORIDE
     Dosage: 1 UNK, BID, MON-THURS
     Route: 061
  11. VITAMINS [Concomitant]
     Active Substance: VITAMINS
     Dosage: 1 UNK, BID, MON-THURS
     Route: 061

REACTIONS (1)
  - Clostridium difficile infection [Recovering/Resolving]
